FAERS Safety Report 6684502-3 (Version None)
Quarter: 2010Q2

REPORT INFORMATION
  Report Type: 
  Country: None (occurrence: None)
  Receive Date: 20100416
  Receipt Date: 20081028
  Transmission Date: 20101027
  Serious: Yes (Hospitalization)
  Sender: FDA-Public Use
  Company Number: PL-ROCHE-507540

PATIENT
  Sex: Female
  Weight: 51 kg

DRUGS (8)
  1. TOCILIZUMAB [Suspect]
     Indication: RHEUMATOID ARTHRITIS
     Dosage: DOSAGE FORM REPORTED AS INFUSION TREATMENT PERMANATLY DISCONTINUED
     Route: 042
     Dates: end: 20070724
  2. PLACEBO [Suspect]
     Indication: RHEUMATOID ARTHRITIS
     Dosage: DOSAGE FORM REPORTED AS INFUSION.
     Route: 042
     Dates: start: 20061108
  3. METHOTREXATE [Suspect]
     Indication: RHEUMATOID ARTHRITIS
     Dosage: ROUTE ORAL OR PARENTERAL AS PER PROTOCOL.
     Route: 048
     Dates: start: 20050420
  4. OMEPRAZOLE [Concomitant]
     Dates: start: 20060216
  5. METHYLPREDNISOLONE [Concomitant]
     Dates: start: 20050713
  6. DICLOFENAC SODIUM [Concomitant]
     Dates: start: 20060522
  7. FOLIC ACID [Concomitant]
     Dates: start: 20060216
  8. ENCORTON [Concomitant]

REACTIONS (1)
  - CERVIX CARCINOMA STAGE III [None]
